FAERS Safety Report 4552650-X (Version None)
Quarter: 2005Q1

REPORT INFORMATION
  Report Type: 
  Country: None (occurrence: None)
  Receive Date: 20050114
  Receipt Date: 20050104
  Transmission Date: 20050727
  Serious: Yes (Other)
  Sender: FDA-Public Use
  Company Number: PHBS2005GB00599

PATIENT
  Age: 45 Year
  Sex: Male

DRUGS (3)
  1. GABAPENTIN [Suspect]
     Route: 065
  2. LEVETIRACETAM [Suspect]
     Route: 065
  3. CARBAMAZEPINE [Suspect]
     Indication: TEMPORAL LOBE EPILEPSY
     Route: 065

REACTIONS (3)
  - CARDIAC ARREST [None]
  - CARDIAC PACEMAKER INSERTION [None]
  - SINUS TACHYCARDIA [None]
